FAERS Safety Report 6881580-3 (Version None)
Quarter: 2010Q3

REPORT INFORMATION
  Report Type: 
  Country: None (occurrence: None)
  Receive Date: 20100729
  Receipt Date: 20100722
  Transmission Date: 20110219
  Serious: No
  Sender: FDA-Public Use
  Company Number: US-BIOGENIDEC-2010BI022527

PATIENT
  Age: 36 Year
  Sex: Female

DRUGS (1)
  1. TYSABRI [Suspect]
     Indication: MULTIPLE SCLEROSIS
     Route: 042
     Dates: start: 20091116

REACTIONS (3)
  - DRUG SPECIFIC ANTIBODY PRESENT [None]
  - INTRACRANIAL HYPOTENSION [None]
  - MULTIPLE SCLEROSIS [None]
